FAERS Safety Report 11905376 (Version 1)
Quarter: 2016Q1

REPORT INFORMATION
  Report Type: Spontaneous
  Country: US (occurrence: US)
  Receive Date: 20160109
  Receipt Date: 20160109
  Transmission Date: 20160526
  Serious: No
  Sender: FDA-Public Use
  Company Number: US-JNJFOC-20151202820

PATIENT

DRUGS (6)
  1. LITHIUM. [Suspect]
     Active Substance: LITHIUM
     Indication: MANIA
     Route: 065
  2. RISPERIDONE. [Suspect]
     Active Substance: RISPERIDONE
     Indication: BIPOLAR I DISORDER
     Route: 065
  3. LITHIUM. [Suspect]
     Active Substance: LITHIUM
     Indication: MANIA
     Route: 065
  4. VALPROATE [Suspect]
     Active Substance: VALPROATE SODIUM
     Indication: MANIA
     Route: 065
  5. RISPERIDONE. [Suspect]
     Active Substance: RISPERIDONE
     Indication: BIPOLAR I DISORDER
     Route: 065
  6. VALPROATE [Suspect]
     Active Substance: VALPROATE SODIUM
     Indication: MANIA
     Route: 065

REACTIONS (21)
  - Dry mouth [Unknown]
  - Increased appetite [Unknown]
  - Tremor [Unknown]
  - Constipation [Unknown]
  - Vomiting [Unknown]
  - Headache [Unknown]
  - Disturbance in attention [Unknown]
  - Blood prolactin increased [Unknown]
  - Hyperhidrosis [Unknown]
  - Somnolence [Unknown]
  - Pollakiuria [Unknown]
  - Rash [Unknown]
  - Abdominal pain [Unknown]
  - Diarrhoea [Unknown]
  - Pyrexia [Unknown]
  - Enuresis [Unknown]
  - Thirst [Unknown]
  - Withdrawal syndrome [Unknown]
  - Weight increased [Unknown]
  - Middle insomnia [Unknown]
  - Nasal congestion [Unknown]
